FAERS Safety Report 11021043 (Version 3)
Quarter: 2015Q3

REPORT INFORMATION
  Report Type: Spontaneous
  Country: JP (occurrence: JP)
  Receive Date: 20150413
  Receipt Date: 20150810
  Transmission Date: 20151125
  Serious: Yes (Other)
  Sender: FDA-Public Use
  Company Number: JP-SHIRE-JP201503116

PATIENT
  Age: 59 Year
  Sex: Female

DRUGS (11)
  1. BUFFERIN [Concomitant]
     Active Substance: ASPIRIN
     Indication: SHUNT STENOSIS
     Dosage: 81 MG, UNKNOWN
     Route: 048
     Dates: start: 20031231
  2. RENAGEL [Concomitant]
     Active Substance: SEVELAMER HYDROCHLORIDE
     Indication: HYPERPHOSPHATAEMIA
     Dosage: 2250 MG, UNKNOWN
     Route: 048
     Dates: start: 20070427
  3. FOSRENOL [Suspect]
     Active Substance: LANTHANUM CARBONATE
     Indication: HYPERPHOSPHATAEMIA
     Dosage: 750 MG, UNKNOWN (TOTAL DAILY DOSE)
     Route: 048
     Dates: start: 20100407, end: 20100420
  4. FOSRENOL [Suspect]
     Active Substance: LANTHANUM CARBONATE
     Dosage: 1500 MG, UNKNOWN (TOTAL DAILY DOSE)
     Route: 048
     Dates: start: 20110518, end: 20120612
  5. REGPARA [Concomitant]
     Active Substance: CINACALCET HYDROCHLORIDE
     Indication: HYPERPARATHYROIDISM SECONDARY
     Dosage: 25 MG, UNKNOWN
     Route: 048
     Dates: start: 20080128
  6. FOSRENOL [Suspect]
     Active Substance: LANTHANUM CARBONATE
     Dosage: 1500 MG, UNKNOWN (TOTAL DAILY DOSE)
     Route: 048
     Dates: start: 20100421, end: 20100728
  7. CALBLOCK [Concomitant]
     Active Substance: AZELNIDIPINE
     Indication: HYPERTENSION
     Dosage: 8 MG, UNKNOWN
     Route: 048
     Dates: start: 20091228
  8. FOSRENOL [Suspect]
     Active Substance: LANTHANUM CARBONATE
     Indication: HYPERPHOSPHATAEMIA
     Dosage: 1500 MG, UNKNOWN(TOTAL DAILY DOSE)
     Route: 048
     Dates: start: 20120613, end: 20130829
  9. DIOVAN [Concomitant]
     Active Substance: VALSARTAN
     Indication: HYPERTENSION
     Dosage: 80 MG, UNKNOWN
     Route: 048
     Dates: start: 20030917
  10. TOUGHMAC E [Concomitant]
     Active Substance: AMYLASE\LIPASE\PROTEASE
     Indication: DYSPEPSIA
     Dosage: 3 DF, UNKNOWN
     Route: 048
     Dates: start: 20100531
  11. EVISTA [Concomitant]
     Active Substance: RALOXIFENE HYDROCHLORIDE
     Indication: OSTEOPOROSIS
     Dosage: 60 MG, UNKNOWN
     Route: 048
     Dates: start: 20050119

REACTIONS (5)
  - Weight decreased [Recovered/Resolved]
  - Gastric mucosal hypertrophy [Not Recovered/Not Resolved]
  - Nausea [Recovering/Resolving]
  - Medication residue present [Not Recovered/Not Resolved]
  - Decreased appetite [Recovering/Resolving]

NARRATIVE: CASE EVENT DATE: 20111005
